FAERS Safety Report 9602094 (Version 2)
Quarter: 2013Q4

REPORT INFORMATION
  Report Type: Spontaneous
  Country: US (occurrence: US)
  Receive Date: 20131007
  Receipt Date: 20131007
  Transmission Date: 20140711
  Serious: Yes (Other)
  Sender: FDA-Public Use
  Company Number: US-BRISTOL-MYERS SQUIBB COMPANY-19212794

PATIENT
  Age: 77 Year
  Sex: Male

DRUGS (10)
  1. NULOJIX [Suspect]
     Indication: RENAL TRANSPLANT
     Dosage: LAST DOSE:16AUG13
     Route: 042
     Dates: start: 20120817
  2. CELLCEPT [Concomitant]
     Dosage: DF= 500 MG IN AM, 250 MG IN PM
  3. LISINOPRIL [Concomitant]
     Route: 048
  4. INDERAL [Concomitant]
     Route: 048
  5. ZANTAC [Concomitant]
     Route: 048
  6. LIPITOR [Concomitant]
     Route: 048
  7. ACETYLSALICYLIC ACID [Concomitant]
     Route: 048
  8. GABAPENTIN [Concomitant]
     Dosage: 900 MG
     Route: 048
  9. FISH OIL [Concomitant]
     Route: 048
  10. VITAMIN D [Concomitant]
     Dosage: 1DF:2000 UNITS
     Route: 048

REACTIONS (1)
  - Herpes zoster [Unknown]
